FAERS Safety Report 6804427-X (Version None)
Quarter: 2010Q2

REPORT INFORMATION
  Report Type: 
  Country: None (occurrence: None)
  Receive Date: 20100628
  Receipt Date: 20070507
  Transmission Date: 20101027
  Serious: Yes (Other)
  Sender: FDA-Public Use
  Company Number: US-PFIZER INC-2007019489

PATIENT
  Sex: Male
  Weight: 68 kg

DRUGS (1)
  1. ZIPRASIDONE HCL [Suspect]
     Indication: BIPOLAR DISORDER

REACTIONS (1)
  - PRIAPISM [None]
